FAERS Safety Report 4892438-3 (Version None)
Quarter: 2006Q1

REPORT INFORMATION
  Report Type: 
  Country: None (occurrence: None)
  Receive Date: 20060125
  Receipt Date: 20060125
  Transmission Date: 20060701
  Serious: Yes (Hospitalization)
  Sender: FDA-Public Use
  Company Number: None

PATIENT
  Age: 54 Year
  Sex: Female

DRUGS (8)
  1. METHOTREXATE [Suspect]
     Indication: NATURAL KILLER-CELL LYMPHOBLASTIC LYMPHOMA
     Dosage: 1560MG   CONT INFUSION
     Dates: start: 20051104, end: 20051105
  2. ACYCLOVIR [Concomitant]
  3. CIPRO [Concomitant]
  4. ATIVAN [Concomitant]
  5. FLUCONAZOLE [Concomitant]
  6. DECADRON SRC [Concomitant]
  7. SOLU-MEDROL [Concomitant]
  8. COREG [Concomitant]

REACTIONS (2)
  - BLOOD CREATININE INCREASED [None]
  - RENAL IMPAIRMENT [None]
